FAERS Safety Report 17900024 (Version 1)
Quarter: 2020Q2

REPORT INFORMATION
  Report Type: Spontaneous
  Country: US (occurrence: US)
  Receive Date: 20200616
  Receipt Date: 20200616
  Transmission Date: 20200714
  Serious: Yes (Hospitalization)
  Sender: FDA-Public Use
  Company Number: US-BIOGEN-2020BI00825840

PATIENT
  Sex: Female

DRUGS (1)
  1. TECFIDERA [Suspect]
     Active Substance: DIMETHYL FUMARATE
     Indication: MULTIPLE SCLEROSIS
     Route: 048
     Dates: start: 20180601, end: 20200505

REACTIONS (10)
  - Cyanosis [Recovered/Resolved]
  - Syncope [Recovered/Resolved]
  - Blood cholesterol increased [Unknown]
  - Arterial occlusive disease [Recovered/Resolved]
  - Gangrene [Not Recovered/Not Resolved]
  - Device occlusion [Unknown]
  - Memory impairment [Recovered/Resolved]
  - Pain [Not Recovered/Not Resolved]
  - Lymphoedema [Recovered/Resolved]
  - Fall [Recovered/Resolved]
